FAERS Safety Report 19847220 (Version 1)
Quarter: 2021Q3

REPORT INFORMATION
  Report Type: Spontaneous
  Country: MY (occurrence: MY)
  Receive Date: 20210917
  Receipt Date: 20210917
  Transmission Date: 20211014
  Serious: Yes (Death)
  Sender: FDA-Public Use
  Company Number: MY-009507513-2109MYS003727

PATIENT
  Sex: Male

DRUGS (6)
  1. IMIPENEM AND CILASTATIN [Suspect]
     Active Substance: CILASTATIN SODIUM\IMIPENEM
     Indication: MYCOBACTERIAL INFECTION
  2. NEUPOGEN [Concomitant]
     Active Substance: FILGRASTIM
     Indication: DEVICE RELATED INFECTION
     Route: 058
  3. NEUPOGEN [Concomitant]
     Active Substance: FILGRASTIM
     Indication: MYCOBACTERIAL INFECTION
  4. IMIPENEM AND CILASTATIN [Suspect]
     Active Substance: CILASTATIN SODIUM\IMIPENEM
     Indication: DEVICE RELATED INFECTION
     Dosage: 1 GRAM, Q6H
     Route: 042
  5. METHYLPREDNISOLONE. [Concomitant]
     Active Substance: METHYLPREDNISOLONE
     Indication: DEVICE RELATED INFECTION
     Route: 042
  6. METHYLPREDNISOLONE. [Concomitant]
     Active Substance: METHYLPREDNISOLONE
     Indication: MYCOBACTERIAL INFECTION

REACTIONS (1)
  - Treatment failure [Fatal]
